FAERS Safety Report 8955260 (Version 1)
Quarter: 2012Q4

REPORT INFORMATION
  Report Type: 
  Country: US (occurrence: US)
  Receive Date: 20121207
  Receipt Date: 20121207
  Transmission Date: 20130627
  Serious: Yes (Life-Threatening, Hospitalization, Other)
  Sender: FDA-Public Use
  Company Number: US-ELI_LILLY_AND_COMPANY-US201201008919

PATIENT
  Age: 61 Year
  Sex: Male

DRUGS (13)
  1. BYETTA [Suspect]
     Dosage: 5 ug, bid
     Route: 058
     Dates: start: 200703
  2. BYETTA [Suspect]
     Dosage: 10 ug, each morning
     Route: 058
  3. BENICAR [Concomitant]
     Dosage: 40 mg, qd
  4. LOTREL [Concomitant]
     Dosage: UNK, qd
  5. COREG [Concomitant]
     Dosage: 50 mg, bid
  6. CHLORTHALIDONE [Concomitant]
     Dosage: 50 mg, qod
  7. TORSEMIDE [Concomitant]
     Dosage: 20 mg, qd
  8. ACTOS [Concomitant]
     Dosage: 45 mg, qd
  9. AMARYL [Concomitant]
     Dosage: 8 mg, each morning
  10. METFORMIN [Concomitant]
     Dosage: 1000 mg, bid
  11. LANTUS [Concomitant]
     Dosage: 25 u, each evening
  12. ALLOPURINOL [Concomitant]
     Dosage: 100 ug, bid
  13. CRESTOR [Concomitant]
     Dosage: 10 mg, qd

REACTIONS (3)
  - Pericardial effusion [Recovering/Resolving]
  - Renal tubular necrosis [Recovering/Resolving]
  - Renal failure [Recovering/Resolving]
